FAERS Safety Report 4482484-6 (Version None)
Quarter: 2004Q4

REPORT INFORMATION
  Report Type: 
  Country: None (occurrence: None)
  Receive Date: 20041022
  Receipt Date: 20041008
  Transmission Date: 20050328
  Serious: Yes (Congenital Anomaly)
  Sender: FDA-Public Use
  Company Number: BR-MERCK-0410BRA00361B1

PATIENT

DRUGS (3)
  1. VIOXX [Suspect]
     Indication: ABDOMINAL PAIN
     Dates: start: 20040201, end: 20040301
  2. VIOXX [Suspect]
     Indication: MUSCLE SPASMS
     Dates: start: 20040201, end: 20040301
  3. ETILEFRINE HYDROCHLORIDE [Concomitant]
     Indication: PROPHYLAXIS

REACTIONS (1)
  - CARDIAC MURMUR [None]
